FAERS Safety Report 13739149 (Version 1)
Quarter: 2017Q3

REPORT INFORMATION
  Report Type: Spontaneous
  Country: US (occurrence: US)
  Receive Date: 20170710
  Receipt Date: 20170710
  Transmission Date: 20171127
  Serious: Yes (Other)
  Sender: FDA-Public Use
  Company Number: US-SAOL THERAPEUTICS-2017SAO00449

PATIENT
  Age: 54 Year
  Sex: Male
  Weight: 67.98 kg

DRUGS (4)
  1. BACLOFEN. [Suspect]
     Active Substance: BACLOFEN
     Dosage: 770.4 ?G, \DAY
     Route: 037
     Dates: start: 20161120
  2. SUFENTA [Suspect]
     Active Substance: SUFENTANIL CITRATE
     Dosage: 204.83 ?G, \DAY
     Route: 037
     Dates: start: 20161120
  3. BUPIVACAINE. [Suspect]
     Active Substance: BUPIVACAINE
     Dosage: 12.517 MG, \DAY
     Route: 037
     Dates: start: 20161120
  4. CLONIDINE. [Suspect]
     Active Substance: CLONIDINE
     Dosage: 924 ?G, \DAY
     Route: 037
     Dates: start: 20161120

REACTIONS (2)
  - Pain [Unknown]
  - Device failure [Unknown]

NARRATIVE: CASE EVENT DATE: 20161119
